FAERS Safety Report 5091729-3 (Version None)
Quarter: 2006Q3

REPORT INFORMATION
  Report Type: 
  Country: None (occurrence: None)
  Receive Date: 20060824
  Receipt Date: 20060815
  Transmission Date: 20061208
  Serious: Yes (Other)
  Sender: FDA-Public Use
  Company Number: 2006099903

PATIENT
  Sex: Female

DRUGS (3)
  1. MYLANTA PLUS (MAGNESIUM HYDROXIDE, ALUMINUM HYDROXIDE, SIMETHICONE) [Suspect]
     Indication: ABDOMINAL PAIN UPPER
     Dosage: PRN, ORAL
     Route: 048
     Dates: end: 20060101
  2. INSULIN [Suspect]
     Indication: DIABETES MELLITUS
  3. GLIMEPIRIDE [Suspect]
     Indication: DIABETES MELLITUS

REACTIONS (4)
  - BLOOD PRESSURE INCREASED [None]
  - CONDITION AGGRAVATED [None]
  - DIABETES MELLITUS [None]
  - DRUG HYPERSENSITIVITY [None]
